FAERS Safety Report 6795835-4 (Version None)
Quarter: 2010Q2

REPORT INFORMATION
  Report Type: 
  Country: None (occurrence: None)
  Receive Date: 20100625
  Receipt Date: 20100618
  Transmission Date: 20101027
  Serious: Yes (Hospitalization)
  Sender: FDA-Public Use
  Company Number: A0865511A

PATIENT
  Age: 46 Year
  Sex: Male

DRUGS (8)
  1. VOTRIENT [Suspect]
     Indication: LEIOMYOSARCOMA
     Dosage: 800MG PER DAY
     Route: 048
     Dates: start: 20100605, end: 20100615
  2. ANTI-NAUSEA DRUGS [Concomitant]
  3. VITAMINS [Concomitant]
  4. WATER PILL [Concomitant]
  5. FENTANYL [Concomitant]
     Route: 062
  6. WATER PILL [Concomitant]
  7. SODIUM BICARBONATE [Concomitant]
  8. OXYCODONE [Concomitant]

REACTIONS (16)
  - BEDRIDDEN [None]
  - CLOSTRIDIAL INFECTION [None]
  - DECREASED APPETITE [None]
  - DECUBITUS ULCER [None]
  - DEHYDRATION [None]
  - DYSPNOEA [None]
  - FEELING COLD [None]
  - HYPERSOMNIA [None]
  - HYPOPHAGIA [None]
  - HYPOTHYROIDISM [None]
  - ILL-DEFINED DISORDER [None]
  - LETHARGY [None]
  - NAUSEA [None]
  - PAIN [None]
  - THYROID DISORDER [None]
  - WEIGHT INCREASED [None]
